FAERS Safety Report 6908479-8 (Version None)
Quarter: 2010Q3

REPORT INFORMATION
  Report Type: 
  Country: None (occurrence: None)
  Receive Date: 20100805
  Receipt Date: 20100727
  Transmission Date: 20110219
  Serious: Yes (Death, Life-Threatening)
  Sender: FDA-Public Use
  Company Number: JP-PFIZER INC-2010090689

PATIENT
  Age: 75 Year
  Sex: Male

DRUGS (15)
  1. ZITHROMAC SR [Suspect]
     Indication: PROPHYLAXIS
     Dosage: 2 G, 1X/DAY
     Route: 048
     Dates: start: 20100712, end: 20100712
  2. LOXONIN [Concomitant]
     Dosage: 120 MG, 1X/DAY
     Route: 048
     Dates: start: 20100712, end: 20100712
  3. TETRACYCLINE [Concomitant]
     Dosage: UNK
     Route: 061
     Dates: start: 20100712, end: 20100712
  4. FAMOTIDINE [Concomitant]
     Indication: GASTRITIS
     Dosage: 20 MG, 2X/DAY
     Route: 048
     Dates: start: 20100715
  5. BETAMAC [Concomitant]
     Dosage: 100 MG, UNK
     Route: 048
  6. FLUVASTATIN [Concomitant]
     Dosage: 30 MG, UNK
     Route: 048
  7. MIYARISAN W [Concomitant]
     Dosage: UNK
     Route: 048
     Dates: start: 20070101, end: 20070717
  8. LIDOCAINE W/EPINEPHRINE ^EGYT^ [Concomitant]
     Indication: LOCAL ANAESTHESIA
     Dosage: 1.8 ML, 1X/DAY
     Dates: start: 20100712, end: 20100712
  9. NAUZELIN [Concomitant]
     Indication: NAUSEA
     Dosage: 10 MG, AS NEEDED
     Route: 048
     Dates: start: 20100715, end: 20100717
  10. NAUZELIN [Concomitant]
     Indication: VOMITING
  11. LACTEC G [Concomitant]
     Indication: DEHYDRATION
     Dosage: 250 ML, 1X/DAY
     Route: 041
     Dates: start: 20100716, end: 20100716
  12. C-PARA [Concomitant]
     Indication: MALNUTRITION
     Dosage: UNK
     Route: 041
     Dates: start: 20100716, end: 20100716
  13. PRIMPERAN TAB [Concomitant]
     Indication: NAUSEA
     Dosage: UNK
     Route: 041
     Dates: start: 20100716, end: 20100716
  14. PRIMPERAN TAB [Concomitant]
     Indication: VOMITING
  15. CRAVIT [Concomitant]
     Indication: ENTEROCOLITIS BACTERIAL
     Dosage: 400 MG, 1X/DAY
     Route: 048
     Dates: start: 20100717, end: 20100717

REACTIONS (2)
  - ASPHYXIA [None]
  - INTESTINAL OBSTRUCTION [None]
